FAERS Safety Report 17940823 (Version 1)
Quarter: 2020Q2

REPORT INFORMATION
  Report Type: Spontaneous
  Country: US (occurrence: US)
  Receive Date: 20200624
  Receipt Date: 20200624
  Transmission Date: 20200714
  Serious: Yes (Death)
  Sender: FDA-Public Use
  Company Number: None

PATIENT
  Age: 68 Year
  Sex: Female

DRUGS (7)
  1. HYDROXYCHLOROQUINE 200MG [Concomitant]
     Active Substance: HYDROXYCHLOROQUINE
     Dates: start: 20200425
  2. ATORVASTATIN 40MG [Concomitant]
     Active Substance: ATORVASTATIN
  3. VENTOLIN [Concomitant]
     Active Substance: ALBUTEROL SULFATE
     Dates: start: 20200425
  4. PROCHLORPERAZINE 10MG [Concomitant]
  5. IBRANCE [Suspect]
     Active Substance: PALBOCICLIB
     Indication: BREAST CANCER
     Route: 048
     Dates: start: 20200226, end: 20200430
  6. GABAPENTIN 300 [Concomitant]
     Active Substance: GABAPENTIN
     Dates: start: 20200526
  7. TRAZODONE 100 [Concomitant]
     Dates: start: 20200427

REACTIONS (1)
  - Death [None]

NARRATIVE: CASE EVENT DATE: 20200624
